FAERS Safety Report 7465346-1 (Version None)
Quarter: 2011Q2

REPORT INFORMATION
  Report Type: 
  Country: None (occurrence: None)
  Receive Date: 20110509
  Receipt Date: 20110503
  Transmission Date: 20111010
  Serious: Yes (Other)
  Sender: FDA-Public Use
  Company Number: GB-BRISTOL-MYERS SQUIBB COMPANY-15569361

PATIENT
  Age: 53 Year
  Sex: Male

DRUGS (1)
  1. ATAZANAVIR [Suspect]
     Dosage: DURATION:2-7YEARS

REACTIONS (2)
  - HYDRONEPHROSIS [None]
  - NEPHROLITHIASIS [None]
